FAERS Safety Report 6282384-5 (Version None)
Quarter: 2009Q3

REPORT INFORMATION
  Report Type: 
  Country: None (occurrence: None)
  Receive Date: 20090724
  Receipt Date: 20090717
  Transmission Date: 20100115
  Serious: Yes (Other)
  Sender: FDA-Public Use
  Company Number: US-JNJFOC-20090706754

PATIENT
  Sex: Female

DRUGS (2)
  1. DURAGESIC-100 [Suspect]
     Indication: ACCIDENT
     Route: 062
  2. PREVACID [Concomitant]
     Indication: GASTRIC DISORDER
     Route: 048

REACTIONS (5)
  - CHEST PAIN [None]
  - HEADACHE [None]
  - INTENTIONAL DRUG MISUSE [None]
  - WEIGHT DECREASED [None]
  - WEIGHT INCREASED [None]
